FAERS Safety Report 16595156 (Version 1)
Quarter: 2019Q3

REPORT INFORMATION
  Report Type: Spontaneous
  Country: FR (occurrence: FR)
  Receive Date: 20190718
  Receipt Date: 20190718
  Transmission Date: 20191004
  Serious: Yes (Death, Hospitalization)
  Sender: FDA-Public Use
  Company Number: FR-BAXTER-2019BAX013602

PATIENT
  Age: 72 Year
  Sex: Male
  Weight: 53 kg

DRUGS (14)
  1. LOVENOX [Concomitant]
     Active Substance: ENOXAPARIN SODIUM
     Indication: THROMBOSIS PROPHYLAXIS
     Dosage: LOVENOX 4,000 IU ANTI-XA/0.4 ML, SOLUTION FOR INJECTION, IN AMPOULE
     Route: 058
     Dates: start: 201812
  2. PARACETAMOL [Concomitant]
     Active Substance: ACETAMINOPHEN
     Indication: PAIN
     Route: 042
  3. NEBIVOLOL. [Concomitant]
     Active Substance: NEBIVOLOL
     Indication: HYPERTENSION
     Route: 048
  4. LANSOPRAZOLE. [Concomitant]
     Active Substance: LANSOPRAZOLE
     Indication: PROPHYLAXIS AGAINST GASTROINTESTINAL ULCER
     Route: 048
  5. METRONIDAZOLE BAXTER 0,5 POUR CENT, SOLUTION INJECTABLE EN POCHE [Suspect]
     Active Substance: METRONIDAZOLE
     Indication: ABDOMINAL INFECTION
     Route: 042
     Dates: start: 20190214, end: 20190217
  6. CEFTRIAXONE BASE [Suspect]
     Active Substance: CEFTRIAXONE
     Indication: ABDOMINAL INFECTION
     Route: 042
     Dates: start: 20190214, end: 20190217
  7. CILASTATIN SODIUM [Suspect]
     Active Substance: CILASTATIN SODIUM
     Indication: ABDOMINAL INFECTION
     Route: 042
     Dates: start: 20190319, end: 20190330
  8. TAZOBACTAM [Suspect]
     Active Substance: TAZOBACTAM
     Indication: ABDOMINAL INFECTION
     Route: 042
     Dates: start: 20190218, end: 20190311
  9. IMIPENEM ANHYDROUS [Suspect]
     Active Substance: IMIPENEM
     Indication: ABDOMINAL INFECTION
     Route: 042
     Dates: start: 20190319, end: 20190330
  10. LACTULOSE. [Concomitant]
     Active Substance: LACTULOSE
     Indication: CONSTIPATION
     Route: 048
  11. RELVAR ELLIPTA [Concomitant]
     Active Substance: FLUTICASONE FUROATE\VILANTEROL TRIFENATATE
     Indication: CHRONIC OBSTRUCTIVE PULMONARY DISEASE
     Route: 055
  12. SALBUTAMOL [Concomitant]
     Active Substance: ALBUTEROL
     Indication: CHRONIC OBSTRUCTIVE PULMONARY DISEASE
     Route: 055
  13. AMIKACIN. [Suspect]
     Active Substance: AMIKACIN
     Indication: INFECTION
     Route: 042
     Dates: start: 20190319, end: 20190319
  14. PIPERACILLINE BASE [Suspect]
     Active Substance: PIPERACILLIN SODIUM
     Indication: ABDOMINAL INFECTION
     Route: 042
     Dates: start: 20190218, end: 20190311

REACTIONS (1)
  - Clostridium difficile infection [Recovering/Resolving]

NARRATIVE: CASE EVENT DATE: 20190322
